FAERS Safety Report 16653525 (Version 3)
Quarter: 2020Q2

REPORT INFORMATION
  Report Type: Spontaneous
  Country: US (occurrence: US)
  Receive Date: 20190731
  Receipt Date: 20200424
  Transmission Date: 20200713
  Serious: Yes (Hospitalization, Other)
  Sender: FDA-Public Use
  Company Number: US-GILEAD-2019-0420288

PATIENT
  Age: 35 Year
  Sex: Male
  Weight: 60.32 kg

DRUGS (41)
  1. PNEUMOVAX 23 [Concomitant]
     Active Substance: PNEUMOCOCCAL VACCINE, POLYVALENT 23
  2. DIPHENHYDRAMINE HCL [Concomitant]
     Active Substance: DIPHENHYDRAMINE HYDROCHLORIDE
  3. POTASSIUM CITRATE. [Concomitant]
     Active Substance: POTASSIUM CITRATE
  4. GENVOYA [Concomitant]
     Active Substance: COBICISTAT\ELVITEGRAVIR\EMTRICITABINE\TENOFOVIR ALAFENAMIDE FUMARATE
  5. ADDERALL [Concomitant]
     Active Substance: AMPHETAMINE ASPARTATE\AMPHETAMINE SULFATE\DEXTROAMPHETAMINE SACCHARATE\DEXTROAMPHETAMINE SULFATE
  6. INFLUENZA [Concomitant]
     Active Substance: INFLUENZA VIRUS VACCINE
  7. HAVRIX [Concomitant]
     Active Substance: HEPATITIS A VIRUS STRAIN HM175 ANTIGEN (FORMALDEHYDE INACTIVATED)
  8. MIRTAZAPINE. [Concomitant]
     Active Substance: MIRTAZAPINE
  9. ACETAMINOPHEN. [Concomitant]
     Active Substance: ACETAMINOPHEN
  10. FOLIC ACID. [Concomitant]
     Active Substance: FOLIC ACID
  11. TRAZODONE [Concomitant]
     Active Substance: TRAZODONE HYDROCHLORIDE
  12. NORCO [Concomitant]
     Active Substance: ACETAMINOPHEN\HYDROCODONE BITARTRATE
  13. ATIVAN [Concomitant]
     Active Substance: LORAZEPAM
  14. AMBIEN [Concomitant]
     Active Substance: ZOLPIDEM TARTRATE
  15. MENINGOCOCCAL POLYSACCHARIDE VACCINE A NOS [Concomitant]
     Active Substance: MENINGOCOCCAL POLYSACCHARIDE VACCINE A\NEISSERIA MENINGITIDIS GROUP A CAPSULAR POLYSACCHARIDE ANTIGEN
  16. HEPATITIS B VACCINE [Concomitant]
     Active Substance: HEPATITIS B VIRUS VACCINE
  17. PROCRIT [Concomitant]
     Active Substance: ERYTHROPOIETIN
  18. EPOETIN ALFA [Concomitant]
     Active Substance: ERYTHROPOIETIN
  19. MORPHINE [Concomitant]
     Active Substance: MORPHINE
  20. TRUVADA [Suspect]
     Active Substance: EMTRICITABINE\TENOFOVIR DISOPROXIL FUMARATE
     Indication: HIV INFECTION
     Dosage: UNK
     Route: 048
     Dates: start: 201008, end: 201802
  21. DOLUTEGRAVIR;RILPIVIRINE [Concomitant]
     Active Substance: DOLUTEGRAVIR SODIUM\RILPIVIRINE HYDROCHLORIDE
  22. HEPATITIS A [Concomitant]
  23. MAGNESIUM SULFATE. [Concomitant]
     Active Substance: MAGNESIUM SULFATE
  24. COSYNTROPIN. [Concomitant]
     Active Substance: COSYNTROPIN
  25. EDURANT [Concomitant]
     Active Substance: RILPIVIRINE HYDROCHLORIDE
  26. CLONAZEPAM. [Concomitant]
     Active Substance: CLONAZEPAM
  27. LIBRIUM [Concomitant]
     Active Substance: CHLORDIAZEPOXIDE HYDROCHLORIDE
  28. CEFTRIAXONE. [Concomitant]
     Active Substance: CEFTRIAXONE
  29. PREZCOBIX [Concomitant]
     Active Substance: COBICISTAT\DARUNAVIR ETHANOLATE
  30. MULTIVITAMINUM [Concomitant]
     Active Substance: VITAMINS
  31. TIVICAY [Concomitant]
     Active Substance: DOLUTEGRAVIR SODIUM
  32. ZOFRAN [Concomitant]
     Active Substance: ONDANSETRON HYDROCHLORIDE
  33. IBUPROFEN. [Concomitant]
     Active Substance: IBUPROFEN
  34. ONDANSETRON [Concomitant]
     Active Substance: ONDANSETRON
  35. PANTOPRAZOLE [Concomitant]
     Active Substance: PANTOPRAZOLE
  36. THIAMINE. [Concomitant]
     Active Substance: THIAMINE
  37. ISENTRESS [Concomitant]
     Active Substance: RALTEGRAVIR POTASSIUM
  38. AZITHROMYCIN ANHYDROUS. [Concomitant]
     Active Substance: AZITHROMYCIN ANHYDROUS
  39. RISPERIDONE. [Concomitant]
     Active Substance: RISPERIDONE
  40. HALOPERIDOL. [Concomitant]
     Active Substance: HALOPERIDOL
  41. PEPCID [Concomitant]
     Active Substance: FAMOTIDINE

REACTIONS (7)
  - Chronic kidney disease [Not Recovered/Not Resolved]
  - Renal failure [Unknown]
  - Anxiety [Unknown]
  - Anhedonia [Unknown]
  - Emotional distress [Unknown]
  - Economic problem [Unknown]
  - Pain [Unknown]

NARRATIVE: CASE EVENT DATE: 201802
